FAERS Safety Report 23731911 (Version 1)
Quarter: 2024Q2

REPORT INFORMATION
  Report Type: Report from Study
  Country: CO (occurrence: CO)
  Receive Date: 20240411
  Receipt Date: 20240411
  Transmission Date: 20240716
  Serious: Yes (Hospitalization)
  Sender: FDA-Public Use
  Company Number: CO-ASTELLAS-2024US010648

PATIENT
  Age: 64 Year
  Sex: Male

DRUGS (1)
  1. TACROLIMUS [Suspect]
     Active Substance: TACROLIMUS
     Indication: Renal transplant
     Route: 048
     Dates: start: 20120202

REACTIONS (3)
  - Infection [Recovered/Resolved]
  - Head discomfort [Recovered/Resolved]
  - Visual impairment [Recovered/Resolved]
